FAERS Safety Report 8879892 (Version 6)
Quarter: 2013Q3

REPORT INFORMATION
  Report Type: Spontaneous
  Country: US (occurrence: US)
  Receive Date: 20121031
  Receipt Date: 20130711
  Transmission Date: 20140515
  Serious: Yes (Hospitalization, Other)
  Sender: FDA-Public Use
  Company Number: US-009507513-1210USA010426

PATIENT
  Sex: Female
  Weight: 88.16 kg

DRUGS (16)
  1. FOSAMAX [Suspect]
     Indication: OSTEOPENIA
     Dosage: 35 MG, QW
     Route: 048
     Dates: start: 20030507, end: 200410
  2. FOSAMAX [Suspect]
     Indication: OSTEOPOROSIS PROPHYLAXIS
     Dosage: UNK
     Route: 048
     Dates: start: 20041003, end: 200705
  3. FOSAMAX [Suspect]
     Dosage: 70 MG, QW
     Route: 048
     Dates: start: 200409
  4. VITAMINS (UNSPECIFIED) [Concomitant]
  5. CRESTOR [Concomitant]
  6. ACTOS [Concomitant]
     Indication: DIABETES MELLITUS
     Dosage: UNK
     Dates: start: 200409
  7. AMARYL [Concomitant]
  8. BYETTA [Concomitant]
  9. SINGULAIR [Concomitant]
  10. LEVOTHROID [Concomitant]
     Indication: HYPOTHYROIDISM
     Dosage: UNK
     Dates: start: 2000
  11. ZYRTEC [Concomitant]
     Indication: SEASONAL ALLERGY
     Dosage: UNK
     Dates: start: 200304, end: 200705
  12. FLONASE [Concomitant]
     Indication: SEASONAL ALLERGY
     Dosage: UNK
     Dates: start: 200304
  13. LISINOPRIL [Concomitant]
     Indication: HYPERTENSION
     Dosage: 10 MG, UNK
     Dates: start: 200305
  14. GLUCOVANCE [Concomitant]
     Indication: DIABETES MELLITUS
     Dosage: UNK
     Dates: start: 200304, end: 200506
  15. ZETIA [Concomitant]
     Indication: DIABETES MELLITUS
     Dosage: UNK
     Dates: start: 200409
  16. METFORMIN [Concomitant]
     Indication: DIABETES MELLITUS
     Dosage: UNK
     Dates: start: 200508, end: 2011

REACTIONS (38)
  - Intramedullary rod insertion [Recovering/Resolving]
  - Appendicectomy [Unknown]
  - Blindness [Unknown]
  - Femur fracture [Unknown]
  - Femur fracture [Unknown]
  - Foot fracture [Unknown]
  - Foot fracture [Unknown]
  - Low turnover osteopathy [Unknown]
  - Vitamin D deficiency [Unknown]
  - Inappropriate schedule of drug administration [Unknown]
  - Toe operation [Unknown]
  - Tooth extraction [Unknown]
  - Tooth extraction [Unknown]
  - Osteoporosis [Not Recovered/Not Resolved]
  - Rotator cuff syndrome [Recovering/Resolving]
  - Epicondylitis [Unknown]
  - Osteoarthritis [Unknown]
  - Intervertebral disc protrusion [Unknown]
  - Intervertebral disc degeneration [Unknown]
  - Intervertebral disc degeneration [Unknown]
  - Pyelonephritis [Unknown]
  - Bronchitis [Unknown]
  - Plantar fasciitis [Unknown]
  - Cardiac murmur [Unknown]
  - Bronchial hyperreactivity [Unknown]
  - Hypoglycaemia [Unknown]
  - Cystitis [Unknown]
  - Diverticulum [Unknown]
  - Atrophic vulvovaginitis [Unknown]
  - Sinus disorder [Unknown]
  - Bursitis [Unknown]
  - Weight decreased [Unknown]
  - Diarrhoea [Unknown]
  - Musculoskeletal pain [Unknown]
  - Myalgia [Unknown]
  - Dizziness [Unknown]
  - Dyspepsia [Unknown]
  - Arthralgia [Unknown]
